FAERS Safety Report 6699559-3 (Version None)
Quarter: 2010Q2

REPORT INFORMATION
  Report Type: 
  Country: None (occurrence: None)
  Receive Date: 20100427
  Receipt Date: 20100427
  Transmission Date: 20101027
  Serious: Yes (Life-Threatening, Hospitalization, Disabling)
  Sender: FDA-Public Use
  Company Number: None

PATIENT
  Sex: Female
  Weight: 48.0813 kg

DRUGS (2)
  1. CARBOPLATIN [Suspect]
     Indication: ADENOCARCINOMA
     Dosage: 360 MG D1 Q 21 DAYS IV
     Route: 042
     Dates: start: 20100414, end: 20100414
  2. ETOPOSIDE [Suspect]
     Indication: ADENOCARCINOMA
     Dosage: 114 MG D 1, 2, 3 Q 21 DAYS I.V.
     Route: 042
     Dates: start: 20100414, end: 20100416

REACTIONS (9)
  - CEREBRAL ISCHAEMIA [None]
  - EMBOLIC CEREBRAL INFARCTION [None]
  - HAEMOGLOBIN DECREASED [None]
  - HAEMORRHAGIC CEREBRAL INFARCTION [None]
  - INTRAVENTRICULAR HAEMORRHAGE [None]
  - NEUTROPENIA [None]
  - PLATELET COUNT DECREASED [None]
  - SUBARACHNOID HAEMORRHAGE [None]
  - WHITE BLOOD CELL COUNT DECREASED [None]
